FAERS Safety Report 17562489 (Version 1)
Quarter: 2020Q1

REPORT INFORMATION
  Report Type: Spontaneous
  Country: NL (occurrence: NL)
  Receive Date: 20200319
  Receipt Date: 20200319
  Transmission Date: 20200409
  Serious: Yes (Death)
  Sender: FDA-Public Use
  Company Number: NL-MYLANLABS-2020M1030498

PATIENT
  Sex: Male
  Weight: 75 kg

DRUGS (1)
  1. SERTRALINE [Suspect]
     Active Substance: SERTRALINE HYDROCHLORIDE
     Indication: OBSESSIVE-COMPULSIVE DISORDER
     Dosage: TABLET, 50 MG (MILLIGRAM), 1 KEER PER DAG, 1-1,5 TABLET
     Dates: start: 201710

REACTIONS (4)
  - Libido decreased [Fatal]
  - Erectile dysfunction [Fatal]
  - Completed suicide [Fatal]
  - Emotional poverty [Fatal]

NARRATIVE: CASE EVENT DATE: 20200108
